FAERS Safety Report 17932980 (Version 2)
Quarter: 2025Q3

REPORT INFORMATION
  Report Type: Spontaneous
  Country: EU (occurrence: EU)
  Receive Date: 20200624
  Receipt Date: 20250704
  Transmission Date: 20251021
  Serious: Yes (Other)
  Sender: AUROBINDO
  Company Number: EU-MLMSERVICE-20200611-2343388-1

PATIENT
  Age: 16 Year
  Sex: Female

DRUGS (1)
  1. VALPROATE SODIUM [Suspect]
     Active Substance: VALPROATE SODIUM
     Indication: Generalised tonic-clonic seizure
     Dosage: 600 MILLIGRAM, ONCE A DAY
     Route: 065

REACTIONS (3)
  - Ovarian cyst [Recovered/Resolved]
  - Weight increased [Unknown]
  - Alopecia [Unknown]
